FAERS Safety Report 5090625-5 (Version None)
Quarter: 2006Q3

REPORT INFORMATION
  Report Type: 
  Country: None (occurrence: None)
  Receive Date: 20060823
  Receipt Date: 20060814
  Transmission Date: 20061208
  Serious: Yes (Hospitalization)
  Sender: FDA-Public Use
  Company Number: 234988K06USA

PATIENT
  Age: 32 Year
  Sex: Female
  Weight: 81.6475 kg

DRUGS (9)
  1. REBIF [Suspect]
     Indication: MULTIPLE SCLEROSIS
     Dosage: 1 WEEK
     Dates: end: 20060416
  2. PROVIGIL [Concomitant]
  3. BACLOFEN [Concomitant]
  4. DITROPAN (OYBUTYNIN /00538901/) [Concomitant]
  5. TYLENOL PM (TYLENOL PM) [Concomitant]
  6. KLONOPIN [Concomitant]
  7. WELLBUTRIN XL [Concomitant]
  8. RITALIN [Concomitant]
  9. LITHIUM (LITHIUM 00033701/) [Concomitant]

REACTIONS (7)
  - ABASIA [None]
  - BLOOD IRON DECREASED [None]
  - COMA [None]
  - CONVULSION [None]
  - HAEMORRHAGE [None]
  - PALPITATIONS [None]
  - SYSTEMIC LUPUS ERYTHEMATOSUS [None]
